FAERS Safety Report 18417082 (Version 3)
Quarter: 2020Q4

REPORT INFORMATION
  Report Type: Report from Study
  Country: GB (occurrence: GB)
  Receive Date: 20201022
  Receipt Date: 20201211
  Transmission Date: 20210114
  Serious: Yes (Hospitalization, Other)
  Sender: FDA-Public Use
  Company Number: GB-BRISTOL-MYERS SQUIBB COMPANY-BMS-2020-085527

PATIENT
  Age: 73 Year
  Sex: Male
  Weight: 72 kg

DRUGS (5)
  1. NIVOLUMAB [Suspect]
     Active Substance: NIVOLUMAB
     Indication: OESOPHAGEAL SQUAMOUS CELL CARCINOMA
     Dosage: 240 MILLIGRAM, Q2WK
     Route: 042
     Dates: start: 20200916, end: 20201001
  2. RAMIPRIL. [Concomitant]
     Active Substance: RAMIPRIL
     Indication: HYPERTENSION
     Dosage: 1.25 MILLIGRAM
     Route: 048
  3. ATORVASTATIN [Concomitant]
     Active Substance: ATORVASTATIN
     Indication: PRODUCT USED FOR UNKNOWN INDICATION
     Dosage: 80 MILLIGRAM
     Route: 048
  4. FONDAPARINUX [Concomitant]
     Active Substance: FONDAPARINUX
     Indication: ANAEMIA
     Route: 065
  5. TAZOCIN [Concomitant]
     Active Substance: PIPERACILLIN SODIUM\TAZOBACTAM SODIUM
     Indication: PNEUMONIA
     Dosage: COMPLETED 7 DAYS COURSE
     Route: 065

REACTIONS (9)
  - Acute coronary syndrome [Recovered/Resolved]
  - Anaemia [Unknown]
  - Confusional state [Recovering/Resolving]
  - Conjunctivitis [Unknown]
  - Diabetic ketoacidosis [Recovered/Resolved]
  - Pulmonary sepsis [Recovered/Resolved]
  - Delirium [Unknown]
  - Myocarditis [Recovering/Resolving]
  - Pneumonia [Unknown]

NARRATIVE: CASE EVENT DATE: 20201006
